FAERS Safety Report 23602580 (Version 1)
Quarter: 2024Q1

REPORT INFORMATION
  Report Type: Spontaneous
  Country: ES (occurrence: ES)
  Receive Date: 20240306
  Receipt Date: 20240306
  Transmission Date: 20240410
  Serious: Yes (Hospitalization)
  Sender: FDA-Public Use
  Company Number: None

PATIENT
  Age: 49 Year
  Sex: Male

DRUGS (3)
  1. EVEROLIMUS [Interacting]
     Active Substance: EVEROLIMUS
     Indication: Renal and pancreas transplant
     Dosage: 1.5 MILLIGRAM, QD
     Route: 048
     Dates: start: 202309
  2. PREDNISONE [Interacting]
     Active Substance: PREDNISONE
     Indication: Renal and pancreas transplant
     Dosage: 5 MILLIGRAM, QD
     Route: 048
     Dates: start: 202308
  3. CYCLOSPORINE [Interacting]
     Active Substance: CYCLOSPORINE
     Indication: Renal and pancreas transplant
     Dosage: 125 MILLIGRAM, QD
     Route: 048
     Dates: start: 202309

REACTIONS (2)
  - Pneumonia [Recovered/Resolved]
  - Drug interaction [Unknown]

NARRATIVE: CASE EVENT DATE: 20240122
